FAERS Safety Report 6198446-7 (Version None)
Quarter: 2009Q2

REPORT INFORMATION
  Report Type: 
  Country: None (occurrence: None)
  Receive Date: 20090521
  Receipt Date: 20090518
  Transmission Date: 20091009
  Serious: Yes (Death)
  Sender: FDA-Public Use
  Company Number: US-ABBOTT-09P-163-0574572-00

PATIENT
  Sex: Male

DRUGS (3)
  1. DEPAKOTE [Suspect]
     Indication: PATIENT RESTRAINT
  2. SEROQUEL [Suspect]
     Indication: PATIENT RESTRAINT
  3. ZYPREXA [Suspect]
     Indication: PATIENT RESTRAINT

REACTIONS (7)
  - DEHYDRATION [None]
  - INFECTED SKIN ULCER [None]
  - MOBILITY DECREASED [None]
  - OVERDOSE [None]
  - PNEUMONIA [None]
  - SEPSIS [None]
  - WEIGHT DECREASED [None]
